FAERS Safety Report 9844865 (Version 1)
Quarter: 2014Q1

REPORT INFORMATION
  Report Type: Spontaneous
  Country: GB (occurrence: None)
  Receive Date: 20140122
  Receipt Date: 20140122
  Transmission Date: 20141002
  Serious: Yes (Other)
  Sender: FDA-Public Use
  Company Number: SYM-2014-14823

PATIENT
  Age: 72 Year
  Sex: Female

DRUGS (9)
  1. METRONIDAZOLE [Suspect]
     Indication: SEPSIS
     Route: 042
     Dates: start: 20131219, end: 20131229
  2. TEICOPLANIN [Suspect]
     Indication: SEPSIS
     Route: 042
     Dates: start: 20131219, end: 20131229
  3. PARACETAMOL [Concomitant]
  4. LANSOPRAZOLE [Concomitant]
  5. GABAPENTIN [Concomitant]
  6. MORPHINE SULFATE [Concomitant]
  7. METOCLOPRAMIDE [Concomitant]
  8. ONDANSETRON [Concomitant]
  9. FENTANYL [Concomitant]

REACTIONS (4)
  - Lip ulceration [None]
  - Swelling face [None]
  - Local swelling [None]
  - Local swelling [None]
